FAERS Safety Report 4494262-2 (Version None)
Quarter: 2004Q4

REPORT INFORMATION
  Report Type: 
  Country: None (occurrence: None)
  Receive Date: 20041104
  Receipt Date: 20041104
  Transmission Date: 20050328
  Serious: Yes (Disabling)
  Sender: FDA-Public Use
  Company Number: None

PATIENT
  Age: 45 Year
  Sex: Female
  Weight: 80.7403 kg

DRUGS (2)
  1. IBUPROFEN [Suspect]
     Indication: ARTHRITIS
     Dosage: 1X3 DAY
  2. IBUPROFEN [Suspect]
     Indication: BACK PAIN
     Dosage: 1X3 DAY

REACTIONS (1)
  - PAIN IN EXTREMITY [None]
